FAERS Safety Report 8584168-1 (Version None)
Quarter: 2012Q3

REPORT INFORMATION
  Report Type: 
  Country: None (occurrence: None)
  Receive Date: 20120810
  Receipt Date: 20120801
  Transmission Date: 20120928
  Serious: Yes (Other)
  Sender: FDA-Public Use
  Company Number: GB-AMGEN-GBRSP2012022210

PATIENT
  Age: 65 Year
  Sex: Female
  Weight: 85.8 kg

DRUGS (12)
  1. SALAMOL                            /00139501/ [Concomitant]
     Dosage: UNK
  2. TRAMADOL HCL [Concomitant]
     Dosage: UNK, 2X/DAY
     Route: 048
  3. FLUTICASONE PROPIONATE/SALMETEROL [Concomitant]
     Dosage: UNK
  4. IBUPROFEN [Concomitant]
     Dosage: UNK, AS NEEDED
  5. ETANERCEPT [Suspect]
     Indication: RHEUMATOID ARTHRITIS
     Dosage: 50 MG, UNK
     Dates: start: 20090601, end: 20120214
  6. GABAPENTIN [Concomitant]
     Dosage: 300 MG, 3X/DAY
     Route: 048
  7. SIMVASTATIN [Concomitant]
     Dosage: 20 MG, 1X/DAY AT NIGHT
     Route: 048
  8. ACETAMINOPHEN [Concomitant]
  9. INDAPAMIDE [Concomitant]
     Dosage: 1.5 MG, 1X/DAY
  10. LEFLUNOMIDE [Concomitant]
     Dosage: 10 MG, 1X/DAY
     Route: 048
  11. TOLTERODINE TARTRATE [Concomitant]
     Dosage: 4 MG, 1X/DAY
  12. ACETAMINOPHEN WITH PROPOXYPHENE HCL TAB [Concomitant]
     Dosage: UNK, AS NEEDED

REACTIONS (1)
  - BREAST CANCER [None]
